FAERS Safety Report 16846446 (Version 5)
Quarter: 2022Q1

REPORT INFORMATION
  Report Type: Report from Study
  Country: US (occurrence: US)
  Receive Date: 20190924
  Receipt Date: 20220103
  Transmission Date: 20220423
  Serious: Yes (Hospitalization)
  Sender: FDA-Public Use
  Company Number: None

PATIENT
  Age: 77 Year
  Sex: Female
  Weight: 62.6 kg

DRUGS (36)
  1. NIRAPARIB [Suspect]
     Active Substance: NIRAPARIB
     Indication: Ovarian cancer
     Dosage: ON DAYS 1-28 OF EACH 28-DAY CYCLE
     Route: 048
     Dates: start: 20190312, end: 20190312
  2. NIRAPARIB [Suspect]
     Active Substance: NIRAPARIB
     Dosage: 200 MG, 1 IN 1 D
     Route: 048
     Dates: start: 20190403, end: 20190403
  3. COBIMETINIB [Suspect]
     Active Substance: COBIMETINIB
     Indication: Ovarian cancer
     Dosage: DAYS 1-21 OF EACH 28-DAY CYCLE
     Route: 048
     Dates: start: 20190312
  4. COBIMETINIB [Suspect]
     Active Substance: COBIMETINIB
     Dosage: 60 MG, 1 IN 21 D
     Route: 048
     Dates: start: 20190401
  5. METOPROLOL [Concomitant]
     Active Substance: METOPROLOL
     Indication: Hypertension
     Dosage: 100 MG, QD
     Route: 048
     Dates: start: 20180814
  6. HYDROCHLOROTHIAZIDE [Concomitant]
     Active Substance: HYDROCHLOROTHIAZIDE
     Indication: Hypertension
     Dosage: 12.5 MG, QD
     Route: 048
     Dates: start: 20190313
  7. LOSARTAN [Concomitant]
     Active Substance: LOSARTAN
     Indication: Hypertension
     Dosage: 50 MG, QD
     Route: 048
     Dates: start: 2016, end: 20190522
  8. SERTRALIN                          /01011401/ [Concomitant]
     Indication: Depression
     Dosage: 25 MG, QD
     Route: 048
     Dates: start: 201609
  9. MONTELUKAST [Concomitant]
     Active Substance: MONTELUKAST SODIUM
     Indication: Chronic sinusitis
     Dosage: 10 MG, QD
     Route: 048
     Dates: start: 2009
  10. ATORVASTATIN [Concomitant]
     Active Substance: ATORVASTATIN
     Indication: Blood cholesterol increased
     Dosage: 40 MG, UNK
     Route: 048
     Dates: start: 2016
  11. CYANOCOBALAMIN [Concomitant]
     Active Substance: CYANOCOBALAMIN
     Indication: Product used for unknown indication
     Dosage: 1000 ?G, QD
     Route: 048
     Dates: start: 20161007
  12. ASPIRIN                            /00002701/ [Concomitant]
     Indication: Cerebrovascular accident prophylaxis
     Dosage: 81 MG, QD
     Route: 048
     Dates: start: 20161007
  13. BIOTIN [Concomitant]
     Active Substance: BIOTIN
     Indication: Product used for unknown indication
     Dosage: 1 DF, QD
     Route: 048
     Dates: start: 2016
  14. CALCIUM CARBONATE\CHOLECALCIFEROL [Concomitant]
     Active Substance: CALCIUM CARBONATE\CHOLECALCIFEROL
     Indication: Product used for unknown indication
     Dosage: 1 DF, UNK
     Route: 048
     Dates: start: 20161012
  15. ZOLPIDEM [Concomitant]
     Active Substance: ZOLPIDEM TARTRATE
     Indication: Insomnia
     Dosage: 5 MG, QD
     Route: 048
     Dates: start: 20180819
  16. POTASSIUM CHLORIDE [Concomitant]
     Active Substance: POTASSIUM CHLORIDE
     Indication: Hypokalaemia
     Dosage: 10 ?G, QD
     Route: 048
     Dates: start: 2016
  17. POTASSIUM CHLORIDE [Concomitant]
     Active Substance: POTASSIUM CHLORIDE
     Dosage: 50 ?G, UNK
     Route: 042
     Dates: start: 20190407, end: 20190407
  18. ZOFRAN                             /00955301/ [Concomitant]
     Indication: Nausea
     Dosage: 4 MG, PRN
     Route: 048
     Dates: start: 20190315
  19. ZOFRAN                             /00955301/ [Concomitant]
     Dosage: 8 MG, PRN
     Route: 048
     Dates: start: 20190319
  20. ZOFRAN                             /00955301/ [Concomitant]
     Dosage: 8 MG, UNK
     Route: 042
     Dates: start: 20190319, end: 20190319
  21. DECADRON                           /00016001/ [Concomitant]
     Indication: Nausea
     Dosage: 2 MG, UNK
     Route: 048
     Dates: start: 20190319
  22. DECADRON                           /00016001/ [Concomitant]
     Dosage: 4 MG, UNK
     Route: 042
     Dates: start: 20190319, end: 20190319
  23. ATIVAN [Concomitant]
     Active Substance: LORAZEPAM
     Indication: Nausea
     Dosage: 0.5 MG, BID
     Route: 048
     Dates: start: 20190319
  24. PEPCID                             /00706001/ [Concomitant]
     Indication: Prophylaxis
     Dosage: 20 MG, UNK
     Route: 048
     Dates: start: 20190319
  25. SODIUM CHLORIDE [Concomitant]
     Active Substance: SODIUM CHLORIDE
     Indication: Dehydration
     Dosage: 1 UNIT, UNKN, 1 IN 1 WEEK
     Route: 042
     Dates: start: 20190319
  26. KCL [Concomitant]
     Active Substance: POTASSIUM CHLORIDE
     Indication: Hypokalaemia
     Dosage: 20 ?G, UNK
     Route: 042
     Dates: start: 20190319, end: 20190319
  27. AZITHROMYCIN [Concomitant]
     Active Substance: AZITHROMYCIN
     Indication: Pneumonia
     Dosage: 500 MG, UNK
     Route: 042
     Dates: start: 20190407, end: 20190409
  28. MAGNESIUM SULFATE [Concomitant]
     Active Substance: MAGNESIUM SULFATE
     Indication: Hypomagnesaemia
     Dosage: 2 G, UNK
     Route: 042
     Dates: start: 20190406, end: 20190406
  29. MACROBID                           /00024401/ [Concomitant]
     Indication: Urinary tract infection
     Dosage: 100 MG, BID
     Route: 048
     Dates: start: 20190407, end: 20190415
  30. NYSTATIN [Concomitant]
     Active Substance: NYSTATIN
     Indication: Candida infection
     Dosage: 5 ML, 4 IN 1 DAY
     Route: 048
     Dates: start: 20190407, end: 20190409
  31. COMPAZINE [Concomitant]
     Active Substance: PROCHLORPERAZINE MALEATE
     Indication: Nausea
     Dosage: 10 MG, UNK
     Route: 048
     Dates: start: 20190405
  32. PHENERGAN                          /00033001/ [Concomitant]
     Indication: Nausea
     Dosage: 12.5 MG, UNK
     Route: 048
     Dates: start: 20190405, end: 20190405
  33. PLAVIX [Concomitant]
     Active Substance: CLOPIDOGREL BISULFATE
     Indication: Cerebrovascular accident prophylaxis
     Dosage: 75 MG, UNK
     Route: 048
     Dates: start: 20161007
  34. HYDROCHLOROTHIAZIDE [Concomitant]
     Active Substance: HYDROCHLOROTHIAZIDE
     Indication: Hypertension
     Dosage: 25 MG, UNK
     Route: 048
     Dates: start: 2016, end: 20190313
  35. HYDROCHLOROTHIAZIDE [Concomitant]
     Active Substance: HYDROCHLOROTHIAZIDE
     Dosage: 12.5 MG, UNK
     Route: 048
     Dates: start: 20190313
  36. CIPRO                              /00697201/ [Concomitant]
     Indication: Infection prophylaxis
     Dosage: 750 MG, 2 IN 1 D
     Route: 048
     Dates: start: 20190416, end: 20190419

REACTIONS (4)
  - Diarrhoea [Recovered/Resolved]
  - Dehydration [Recovered/Resolved]
  - Thrombocytopenia [Recovered/Resolved]
  - Neutropenia [Recovered/Resolved with Sequelae]

NARRATIVE: CASE EVENT DATE: 20190405
